FAERS Safety Report 9786518 (Version 1)
Quarter: 2013Q4

REPORT INFORMATION
  Report Type: Spontaneous
  Country: US (occurrence: US)
  Receive Date: 20131227
  Receipt Date: 20131227
  Transmission Date: 20140711
  Serious: No
  Sender: FDA-Public Use
  Company Number: US-B.I. PHARMACEUTICALS,INC./RIDGEFIELD-2013-BI-42494BP

PATIENT
  Age: 73 Year
  Sex: Female
  Weight: 66 kg

DRUGS (12)
  1. TRADJENTA [Suspect]
     Indication: DIABETES MELLITUS
     Dosage: 5 MG
     Route: 048
     Dates: start: 201310, end: 20131205
  2. LEVOTHYROXINE [Concomitant]
     Indication: HYPOTHYROIDISM
     Dosage: 100 MCG
     Route: 048
  3. ALLOPURINOL [Concomitant]
     Dosage: 300 MG
     Route: 048
  4. LOSARTAN [Concomitant]
     Indication: HYPERTENSION
     Dosage: 50 MG
     Route: 048
  5. FENOFIBRATE [Concomitant]
     Indication: BLOOD CHOLESTEROL INCREASED
     Dosage: 134 MG
     Route: 048
  6. IRON [Concomitant]
     Route: 048
  7. VITAMIN C [Concomitant]
     Route: 048
  8. PROCRIT INJECTIONS [Concomitant]
     Dosage: FORMULATION: INTRAMUSCULAR
     Route: 030
  9. POTASSIUM [Concomitant]
     Indication: MUSCLE SPASMS
     Route: 048
  10. MAGNESIUM [Concomitant]
     Indication: MUSCLE SPASMS
     Route: 048
  11. CALCIUM CITRATE [Concomitant]
     Route: 048
  12. VOLTAREN [Concomitant]
     Indication: SPINAL COMPRESSION FRACTURE
     Dosage: 150 MG
     Route: 048

REACTIONS (6)
  - Flatulence [Recovered/Resolved]
  - Abdominal distension [Recovered/Resolved]
  - Constipation [Recovered/Resolved]
  - Diarrhoea [Not Recovered/Not Resolved]
  - Nausea [Not Recovered/Not Resolved]
  - Dehydration [Recovered/Resolved]
